FAERS Safety Report 7133267-X (Version None)
Quarter: 2010Q4

REPORT INFORMATION
  Report Type: 
  Country: None (occurrence: None)
  Receive Date: 20101202
  Receipt Date: 20101123
  Transmission Date: 20110411
  Serious: Yes (Hospitalization, Other)
  Sender: FDA-Public Use
  Company Number: US-PURDUE-USA-2010-0046829

PATIENT
  Sex: Male
  Weight: 70.295 kg

DRUGS (6)
  1. OXYCONTIN [Suspect]
     Indication: BONE PAIN
     Dosage: 40 MG, TID
     Dates: start: 20020101
  2. OXYCONTIN [Suspect]
     Indication: ARTHRITIS
     Dosage: 40 MG, BID
  3. OXYCODONE HCL [Suspect]
     Indication: PRODUCT USED FOR UNKNOWN INDICATION
     Dosage: 5 MG, UNK
  4. TRAMADOL HCL [Concomitant]
     Indication: PRODUCT USED FOR UNKNOWN INDICATION
     Dosage: 45 MG, UNK
  5. XANAX [Concomitant]
     Indication: PRODUCT USED FOR UNKNOWN INDICATION
     Dosage: 1 MG, UNK
  6. TESTOSTERONE [Concomitant]
     Indication: PRODUCT USED FOR UNKNOWN INDICATION
     Dosage: 30 MG, UNK

REACTIONS (3)
  - EXOSTOSIS [None]
  - KNEE ARTHROPLASTY [None]
  - NERVE COMPRESSION [None]
